FAERS Safety Report 23441551 (Version 1)
Quarter: 2024Q1

REPORT INFORMATION
  Report Type: Spontaneous
  Country: CN (occurrence: CN)
  Receive Date: 20240125
  Receipt Date: 20240125
  Transmission Date: 20240410
  Serious: Yes (Other)
  Sender: FDA-Public Use
  Company Number: CN-AUROBINDO-AUR-APL-2024-002719

PATIENT
  Age: 50 Year
  Sex: Female

DRUGS (11)
  1. MIRTAZAPINE [Suspect]
     Active Substance: MIRTAZAPINE
     Indication: Somatic symptom disorder
     Dosage: 7.5 MILLIGRAM, AT BED TIME
     Route: 048
     Dates: start: 20231228, end: 20231230
  2. MIRTAZAPINE [Suspect]
     Active Substance: MIRTAZAPINE
     Dosage: 15 MILLIGRAM, ONCE A DAY
     Route: 048
     Dates: start: 20231228, end: 20240107
  3. MIRTAZAPINE [Suspect]
     Active Substance: MIRTAZAPINE
     Dosage: 15 MILLIGRAM, AT BED TIME
     Route: 048
     Dates: start: 20231231, end: 20240107
  4. OXAZEPAM [Suspect]
     Active Substance: OXAZEPAM
     Indication: Somatic symptom disorder
     Dosage: 7.5 MILLIGRAM, AT BED TIME
     Route: 048
     Dates: start: 20231221, end: 20231224
  5. OXAZEPAM [Suspect]
     Active Substance: OXAZEPAM
     Dosage: 7.5 MILLIGRAM, 3 TIMES A DAY
     Route: 048
     Dates: start: 20231225, end: 20231228
  6. OXAZEPAM [Suspect]
     Active Substance: OXAZEPAM
     Dosage: 7.5 MILLIGRAM, TWO TIMES A DAY
     Route: 048
     Dates: start: 20231221, end: 20240107
  7. OXAZEPAM [Suspect]
     Active Substance: OXAZEPAM
     Dosage: 7.5 MILLIGRAM (AFTERNOON )
     Route: 048
     Dates: start: 20231229, end: 20240107
  8. VENLAFAXINE HYDROCHLORIDE [Suspect]
     Active Substance: VENLAFAXINE HYDROCHLORIDE
     Indication: Somatic symptom disorder
     Dosage: 50 MILLIGRAM, ONCE A DAY
     Route: 048
     Dates: start: 20231221, end: 20231222
  9. VENLAFAXINE HYDROCHLORIDE [Suspect]
     Active Substance: VENLAFAXINE HYDROCHLORIDE
     Dosage: 50 MILLIGRAM, TWO TIMES A DAY
     Route: 048
     Dates: start: 20231223, end: 20231227
  10. VENLAFAXINE HYDROCHLORIDE [Suspect]
     Active Substance: VENLAFAXINE HYDROCHLORIDE
     Dosage: 50 MILLIGRAM, TWO TIMES A DAY
     Route: 048
     Dates: start: 20231221, end: 20240107
  11. VENLAFAXINE HYDROCHLORIDE [Suspect]
     Active Substance: VENLAFAXINE HYDROCHLORIDE
     Dosage: UNK (100MG/QD, 50MG/AFTERNOON )
     Route: 048
     Dates: start: 20231228, end: 20240107

REACTIONS (1)
  - Liver function test abnormal [Unknown]

NARRATIVE: CASE EVENT DATE: 20240101
